FAERS Safety Report 6059169-8 (Version None)
Quarter: 2009Q1

REPORT INFORMATION
  Report Type: 
  Country: None (occurrence: None)
  Receive Date: 20090127
  Receipt Date: 20090127
  Transmission Date: 20090719
  Serious: Yes (Other)
  Sender: FDA-Public Use
  Company Number: None

PATIENT
  Age: 37 Year
  Sex: Female
  Weight: 55.3388 kg

DRUGS (2)
  1. METOPROLOL TARTRATE [Suspect]
     Indication: HYPERTENSION
     Dosage: 25MG 1 X DAY PO
     Route: 048
     Dates: start: 20060101, end: 20090101
  2. METOPROLOL TARTRATE [Suspect]
     Indication: PALPITATIONS
     Dosage: 25MG 1 X DAY PO
     Route: 048
     Dates: start: 20060101, end: 20090101

REACTIONS (1)
  - ASTHMA [None]
